FAERS Safety Report 6811442-9 (Version None)
Quarter: 2010Q2

REPORT INFORMATION
  Report Type: 
  Country: None (occurrence: None)
  Receive Date: 20100629
  Receipt Date: 20100629
  Transmission Date: 20101027
  Serious: Yes (Hospitalization, Disabling, Other)
  Sender: FDA-Public Use
  Company Number: None

PATIENT
  Age: 48 Year
  Sex: Male
  Weight: 86.1834 kg

DRUGS (2)
  1. LYRICA [Suspect]
     Indication: NEURALGIA
     Dosage: 3 A DAY EVERYDAY BY MOUTH
     Dates: start: 20080221
  2. PREGBALIN - (PREE GAH-BA-LIN) [Suspect]
     Indication: NERVE INJURY

REACTIONS (4)
  - DRUG DEPENDENCE [None]
  - PRURITUS [None]
  - RASH [None]
  - SWELLING [None]
